FAERS Safety Report 8258343-X (Version None)
Quarter: 2012Q1

REPORT INFORMATION
  Report Type: 
  Country: None (occurrence: None)
  Receive Date: 20120322
  Receipt Date: 20120208
  Transmission Date: 20120608
  Serious: Yes (Hospitalization)
  Sender: FDA-Public Use
  Company Number: UTC-014932

PATIENT
  Age: 73 Year
  Sex: Male
  Weight: 91.36 kg

DRUGS (7)
  1. TYVASO [Suspect]
     Indication: PULMONARY ARTERIAL HYPERTENSION
     Dosage: 36 TO 55 BREATHS (4 IN 1 D),INHALATION, 216 MCG (54 MCG,4 IN 1 D),INHALATION,
     Route: 055
     Dates: start: 20100330
  2. TYVASO [Suspect]
     Indication: COR PULMONALE CHRONIC
     Dosage: 36 TO 55 BREATHS (4 IN 1 D),INHALATION, 216 MCG (54 MCG,4 IN 1 D),INHALATION,
     Route: 055
     Dates: start: 20100330
  3. TYVASO [Suspect]
     Indication: PULMONARY ARTERIAL HYPERTENSION
     Dosage: 36 TO 55 BREATHS (4 IN 1 D),INHALATION, 216 MCG (54 MCG,4 IN 1 D),INHALATION,
     Route: 055
     Dates: start: 20110117
  4. TYVASO [Suspect]
     Indication: COR PULMONALE CHRONIC
     Dosage: 36 TO 55 BREATHS (4 IN 1 D),INHALATION, 216 MCG (54 MCG,4 IN 1 D),INHALATION,
     Route: 055
     Dates: start: 20110117
  5. DIURETICS (DIURETICS [Concomitant]
  6. TRACLEER [Concomitant]
  7. COUMADIN [Concomitant]

REACTIONS (2)
  - FLUSHING [None]
  - BACK DISORDER [None]
